FAERS Safety Report 9091578 (Version 1)
Quarter: 2013Q1

REPORT INFORMATION
  Report Type: Report from Study
  Country: CA (occurrence: CA)
  Receive Date: 20130201
  Receipt Date: 20130201
  Transmission Date: 20140127
  Serious: Yes (Other)
  Sender: FDA-Public Use
  Company Number: CA-JNJFOC-20130113763

PATIENT
  Sex: Female
  Weight: 59 kg

DRUGS (8)
  1. REMICADE [Suspect]
     Indication: COLITIS ULCERATIVE
     Dosage: 2 DOSES
     Route: 042
     Dates: start: 20121210
  2. IMURAN [Concomitant]
     Route: 065
  3. MEZAVANT [Concomitant]
     Route: 065
  4. B12 [Concomitant]
     Route: 065
  5. CALCIUM+VITAMIN D [Concomitant]
     Route: 065
  6. UNKNOWN MEDICATION [Concomitant]
     Route: 065
  7. BENADRYL [Concomitant]
     Route: 065
  8. AERIUS [Concomitant]
     Route: 065

REACTIONS (4)
  - Intraocular pressure increased [Unknown]
  - Astigmatism [Unknown]
  - Arthralgia [Not Recovered/Not Resolved]
  - Pain in extremity [Recovered/Resolved]
